FAERS Safety Report 21164855 (Version 3)
Quarter: 2022Q3

REPORT INFORMATION
  Report Type: Spontaneous
  Country: US (occurrence: US)
  Receive Date: 20220803
  Receipt Date: 20220921
  Transmission Date: 20221026
  Serious: No
  Sender: FDA-Public Use
  Company Number: US-PFIZER INC-2021318755

PATIENT
  Age: 15 Year
  Sex: Male
  Weight: 38.1 kg

DRUGS (3)
  1. GENOTROPIN [Suspect]
     Active Substance: SOMATROPIN
     Indication: Growth hormone deficiency
     Dosage: 1.5 MG, DAILY
  2. GENOTROPIN [Suspect]
     Active Substance: SOMATROPIN
     Dosage: 1.6 MG, DAILY
     Dates: start: 20210408
  3. GENOTROPIN [Suspect]
     Active Substance: SOMATROPIN
     Dosage: 2.0 EVERY DAY BY INJECTION IN BUTTOCKS, LEGS OR STOMACH
     Dates: start: 202105

REACTIONS (4)
  - Product prescribing error [Unknown]
  - Wrong technique in device usage process [Unknown]
  - Device issue [Unknown]
  - Drug dose omission by device [Unknown]

NARRATIVE: CASE EVENT DATE: 20220719
